FAERS Safety Report 12331749 (Version 5)
Quarter: 2016Q3

REPORT INFORMATION
  Report Type: Report from Study
  Country: US (occurrence: US)
  Receive Date: 20160504
  Receipt Date: 20160822
  Transmission Date: 20161109
  Serious: Yes (Death, Hospitalization)
  Sender: FDA-Public Use
  Company Number: US-ACTELION-A-NJ2016-135521

PATIENT
  Age: 60 Year
  Sex: Female

DRUGS (12)
  1. VELETRI [Suspect]
     Active Substance: EPOPROSTENOL
     Indication: PULMONARY ARTERIAL HYPERTENSION
     Dosage: 10 NG/KG, PER MIN
     Route: 042
     Dates: start: 20160314, end: 20160628
  2. VITAMIN D [Concomitant]
     Active Substance: CHOLECALCIFEROL
  3. REVATIO [Concomitant]
     Active Substance: SILDENAFIL CITRATE
  4. LOPRESSOR [Concomitant]
     Active Substance: METOPROLOL TARTRATE
  5. TORSEMIDE. [Concomitant]
     Active Substance: TORSEMIDE
  6. WARFARIN [Concomitant]
     Active Substance: WARFARIN
  7. SPIRONOLACTONE. [Concomitant]
     Active Substance: SPIRONOLACTONE
  8. OPSUMIT [Suspect]
     Active Substance: MACITENTAN
     Indication: PULMONARY ARTERIAL HYPERTENSION
     Dosage: 10 MG, QD
     Route: 048
     Dates: start: 20141120, end: 201606
  9. POTASSIUM [Concomitant]
     Active Substance: POTASSIUM
  10. CALCIUM [Concomitant]
     Active Substance: CALCIUM
  11. ELIQUIS [Concomitant]
     Active Substance: APIXABAN
  12. DIGOXIN. [Concomitant]
     Active Substance: DIGOXIN

REACTIONS (10)
  - Blood bilirubin increased [Unknown]
  - Pulmonary arterial hypertension [Unknown]
  - Death [Fatal]
  - Liver function test abnormal [Unknown]
  - Weight increased [Unknown]
  - Cardiac failure [Unknown]
  - Cardiorenal syndrome [Unknown]
  - Fluid retention [Unknown]
  - Fluid overload [Unknown]
  - Renal function test abnormal [Unknown]

NARRATIVE: CASE EVENT DATE: 20160628
